FAERS Safety Report 4829645-1 (Version None)
Quarter: 2005Q4

REPORT INFORMATION
  Report Type: 
  Country: None (occurrence: None)
  Receive Date: 20051116
  Receipt Date: 20051005
  Transmission Date: 20060501
  Serious: Yes (Hospitalization, Other)
  Sender: FDA-Public Use
  Company Number: US-MERCK-0510USA04780

PATIENT
  Age: 75 Year
  Sex: Male
  Weight: 102 kg

DRUGS (2)
  1. VIOXX [Suspect]
     Indication: BACK PAIN
     Route: 048
     Dates: start: 20010401, end: 20040901
  2. LIPITOR [Concomitant]
     Route: 065

REACTIONS (6)
  - ARTHROPATHY [None]
  - BACK DISORDER [None]
  - CARDIAC DISORDER [None]
  - CEREBROVASCULAR ACCIDENT [None]
  - NEPHROLITHIASIS [None]
  - TRANSIENT ISCHAEMIC ATTACK [None]
